FAERS Safety Report 10698143 (Version 2)
Quarter: 2015Q1

REPORT INFORMATION
  Report Type: Spontaneous
  Country: IT (occurrence: IT)
  Receive Date: 20150108
  Receipt Date: 20150114
  Transmission Date: 20150721
  Serious: Yes (Hospitalization)
  Sender: FDA-Public Use
  Company Number: IT-SA-2014SA180780

PATIENT
  Age: 60 Year
  Sex: Male

DRUGS (1)
  1. COAPROVEL [Suspect]
     Active Substance: HYDROCHLOROTHIAZIDE\IRBESARTAN
     Dosage: 150MG/12.5 MG
     Route: 048
     Dates: start: 20141223, end: 20141223

REACTIONS (2)
  - Major depression [Unknown]
  - Drug abuse [Unknown]

NARRATIVE: CASE EVENT DATE: 20141223
